FAERS Safety Report 11702254 (Version 1)
Quarter: 2015Q4

REPORT INFORMATION
  Report Type: Spontaneous
  Country: BR (occurrence: BR)
  Receive Date: 20151105
  Receipt Date: 20151105
  Transmission Date: 20160304
  Serious: Yes (Other)
  Sender: FDA-Public Use
  Company Number: BR-TORRENT-00003180

PATIENT
  Age: 68 Year
  Sex: Female
  Weight: 73 kg

DRUGS (6)
  1. RIVOTRIL [Concomitant]
     Active Substance: CLONAZEPAM
     Indication: PANIC DISORDER
     Dosage: DOSE NUMBER IS UNKNOWN/ ONCE DAILY/ ORAL
     Route: 048
     Dates: start: 1997
  2. ARADOIS [Concomitant]
     Active Substance: LOSARTAN POTASSIUM
     Indication: ARRHYTHMIA
     Dosage: DOSE NUMBER IS UNKNOWN/ ONCE EVERY 12 HOURS/ ORAL
     Route: 048
     Dates: start: 201503
  3. MAREVAN [Concomitant]
     Active Substance: WARFARIN SODIUM
     Indication: INTRACARDIAC THROMBUS
     Dosage: MAREVAN 5 MG HALF OF A TABLET DAILY/ ORAL
     Route: 048
     Dates: start: 201507
  4. PURAN [Concomitant]
     Active Substance: LEVOTHYROXINE SODIUM
     Indication: HYPOTHYROIDISM
     Dosage: ONCE DAILY/ ORAL
     Route: 048
     Dates: start: 1982
  5. NEBLOCK [Suspect]
     Active Substance: NEBIVOLOL HYDROCHLORIDE
     Indication: ARRHYTHMIA
     Dosage: ONCE EVERY 12 HOURS/ ORAL
     Route: 048
     Dates: start: 201503
  6. ESPRAN [Suspect]
     Active Substance: ESCITALOPRAM OXALATE
     Indication: STRESS CARDIOMYOPATHY
     Dosage: ONCE DAILY/ ORAL
     Route: 048
     Dates: start: 201505

REACTIONS (11)
  - Intracardiac thrombus [Not Recovered/Not Resolved]
  - Osteopenia [Not Recovered/Not Resolved]
  - Petechiae [Not Recovered/Not Resolved]
  - Drug ineffective for unapproved indication [Not Recovered/Not Resolved]
  - Contusion [None]
  - Fall [Recovered/Resolved]
  - Amnesia [Not Recovered/Not Resolved]
  - Blood disorder [Not Recovered/Not Resolved]
  - Off label use [Not Recovered/Not Resolved]
  - Stress cardiomyopathy [Not Recovered/Not Resolved]
  - Spinal pain [Not Recovered/Not Resolved]

NARRATIVE: CASE EVENT DATE: 201505
